FAERS Safety Report 5134832-1 (Version None)
Quarter: 2006Q4

REPORT INFORMATION
  Report Type: 
  Country: None (occurrence: None)
  Receive Date: 20061025
  Receipt Date: 20060822
  Transmission Date: 20070319
  Serious: Yes (Hospitalization)
  Sender: FDA-Public Use
  Company Number: 2006AP03957

PATIENT
  Age: 21087 Day
  Sex: Female

DRUGS (13)
  1. ARIMIDEX [Suspect]
     Indication: BREAST CANCER
     Route: 048
     Dates: start: 20060624, end: 20060818
  2. FARMORUBICIN [Concomitant]
     Indication: BREAST CANCER
     Route: 041
     Dates: start: 20060323
  3. FARMORUBICIN [Concomitant]
     Route: 041
     Dates: start: 20060414
  4. FARMORUBICIN [Concomitant]
     Route: 041
     Dates: start: 20060512
  5. FARMORUBICIN [Concomitant]
     Route: 041
     Dates: start: 20060602
  6. ENDOXAN [Concomitant]
     Indication: BREAST CANCER
     Route: 041
     Dates: start: 20060323
  7. ENDOXAN [Concomitant]
     Route: 041
     Dates: start: 20060414
  8. ENDOXAN [Concomitant]
     Route: 041
     Dates: start: 20060512
  9. ENDOXAN [Concomitant]
     Route: 041
     Dates: start: 20060602
  10. HYPEN [Concomitant]
     Indication: MUSCULOSKELETAL PAIN
     Route: 048
     Dates: start: 20060602, end: 20060615
  11. ASTRIC [Concomitant]
     Indication: HERPES ZOSTER
     Route: 048
     Dates: start: 20060630, end: 20060704
  12. GASTER D [Concomitant]
     Indication: GASTRIC ULCER
     Route: 048
  13. KAMAG G [Concomitant]
     Indication: CONSTIPATION
     Route: 048

REACTIONS (1)
  - HEPATIC FUNCTION ABNORMAL [None]
